FAERS Safety Report 4908522-1 (Version None)
Quarter: 2006Q1

REPORT INFORMATION
  Report Type: 
  Country: None (occurrence: None)
  Receive Date: 20060210
  Receipt Date: 20050816
  Transmission Date: 20060701
  Serious: No
  Sender: FDA-Public Use
  Company Number: US-GLAXOSMITHKLINE-A0570439A

PATIENT
  Age: 80 Year
  Sex: Female

DRUGS (4)
  1. PAXIL CR [Suspect]
     Indication: POST-TRAUMATIC STRESS DISORDER
     Dosage: 25MG PER DAY
     Route: 048
     Dates: start: 20050801
  2. KLONOPIN [Suspect]
     Indication: ANXIETY
     Dosage: .25MG THREE TIMES PER DAY
     Route: 048
     Dates: start: 20050701
  3. PAXIL [Suspect]
     Indication: ANXIETY
     Route: 048
     Dates: start: 19950101
  4. ASPIRIN [Concomitant]

REACTIONS (15)
  - ABDOMINAL DISCOMFORT [None]
  - ASTHENIA [None]
  - BALANCE DISORDER [None]
  - DEPRESSED MOOD [None]
  - DISTURBANCE IN ATTENTION [None]
  - DRUG INEFFECTIVE [None]
  - FATIGUE [None]
  - HYPERHIDROSIS [None]
  - INSOMNIA [None]
  - LACRIMATION INCREASED [None]
  - NAUSEA [None]
  - NERVOUSNESS [None]
  - PHARMACEUTICAL PRODUCT COMPLAINT [None]
  - SENSORY DISTURBANCE [None]
  - SOMNOLENCE [None]
